FAERS Safety Report 9262535 (Version 2)
Quarter: 2013Q2

REPORT INFORMATION
  Report Type: Spontaneous
  Country: US (occurrence: US)
  Receive Date: 20130430
  Receipt Date: 20130517
  Transmission Date: 20140414
  Serious: Yes (Hospitalization)
  Sender: FDA-Public Use
  Company Number: US-BAYER-2013-052013

PATIENT
  Age: 38 Year
  Sex: Female
  Weight: 141.45 kg

DRUGS (15)
  1. YAZ [Suspect]
     Indication: DYSMENORRHOEA
     Route: 048
  2. YAZ [Suspect]
     Indication: CONTRACEPTION
  3. GIANVI [Suspect]
  4. CLARITIN [Concomitant]
     Route: 048
  5. IBUPROFEN [Concomitant]
  6. NORCO [Concomitant]
     Indication: PLEURITIC PAIN
     Dosage: 5/325 MG Q 4 HOURS P.R.N. (AS NEEDED)
  7. NORCO [Concomitant]
     Indication: PAIN
  8. ALBUTEROL [Concomitant]
     Indication: ASTHMA
  9. BIOTIN [Concomitant]
     Dosage: 2 MG, DAILY
  10. CALTRATE WITH VITAMIN D [Concomitant]
  11. IRON [FERROUS SULFATE] [Concomitant]
  12. ONDANSETRON [Concomitant]
     Dosage: 4 MG, UNK
     Route: 048
     Dates: start: 20111027
  13. HYDROCODONE/ACETAMINOPHEN [Concomitant]
     Dosage: 7.5 -500 MG
     Route: 048
     Dates: start: 20111027
  14. METHYLPREDNISOLONE [METHYLPREDNISOLONE] [Concomitant]
     Dosage: 4 MG, UNK
     Route: 048
     Dates: start: 20120106
  15. FLUOCINONIDE [Concomitant]
     Dosage: 0.05 %, UNK
     Route: 061
     Dates: start: 20120108

REACTIONS (2)
  - Pulmonary embolism [None]
  - Deep vein thrombosis [None]
